FAERS Safety Report 12886073 (Version 1)
Quarter: 2016Q4

REPORT INFORMATION
  Report Type: Spontaneous
  Country: US (occurrence: US)
  Receive Date: 20161026
  Receipt Date: 20161026
  Transmission Date: 20170207
  Serious: No
  Sender: FDA-Public Use
  Company Number: US-TARO-2016TAR00221

PATIENT
  Age: 43 Year
  Sex: Male
  Weight: 147.85 kg

DRUGS (1)
  1. MUPIROCIN OINTMENT USP 2% [Suspect]
     Active Substance: MUPIROCIN
     Indication: RASH
     Dosage: PEA-SIZED AMOUNT, 3X/DAY TO EACH NARE
     Route: 045
     Dates: start: 20160306, end: 20160307

REACTIONS (8)
  - Application site pain [Recovered/Resolved]
  - Epistaxis [Recovered/Resolved]
  - Rhinalgia [Recovered/Resolved]
  - Incorrect route of drug administration [Recovered/Resolved]
  - Tenderness [Recovered/Resolved]
  - Swelling face [Recovered/Resolved]
  - Headache [Recovered/Resolved]
  - Off label use [Recovered/Resolved]

NARRATIVE: CASE EVENT DATE: 20160306
